FAERS Safety Report 4476641-2 (Version None)
Quarter: 2004Q4

REPORT INFORMATION
  Report Type: 
  Country: None (occurrence: None)
  Receive Date: 20041015
  Receipt Date: 20041015
  Transmission Date: 20050328
  Serious: Yes (Life-Threatening)
  Sender: FDA-Public Use
  Company Number: None

PATIENT
  Age: 29 Year
  Sex: Male
  Weight: 58.9676 kg

DRUGS (3)
  1. LEXAPRO [Suspect]
     Indication: ANXIETY
     Dosage: MORNING NIGHT ORAL
     Route: 048
     Dates: start: 20040910, end: 20040920
  2. LEXAPRO [Suspect]
     Indication: DEPRESSION
     Dosage: MORNING NIGHT ORAL
     Route: 048
     Dates: start: 20040910, end: 20040920
  3. XANEX [Concomitant]

REACTIONS (6)
  - ABNORMAL BEHAVIOUR [None]
  - AGGRESSION [None]
  - ANGER [None]
  - ANXIETY [None]
  - CONDITION AGGRAVATED [None]
  - INDIFFERENCE [None]
